FAERS Safety Report 7408882-6 (Version None)
Quarter: 2011Q2

REPORT INFORMATION
  Report Type: 
  Country: None (occurrence: None)
  Receive Date: 20110412
  Receipt Date: 20110408
  Transmission Date: 20111010
  Serious: Yes (Death, Hospitalization)
  Sender: FDA-Public Use
  Company Number: PHHY2011US24657

PATIENT
  Sex: Male
  Weight: 81 kg

DRUGS (13)
  1. JANUVIA [Concomitant]
  2. ACETAMINOPHEN [Concomitant]
  3. EXJADE [Suspect]
     Indication: MYELODYSPLASTIC SYNDROME
     Dosage: 1000 MG
     Route: 048
     Dates: start: 20101129
  4. COREG [Concomitant]
  5. NEXIUM [Concomitant]
  6. DIOVAN [Concomitant]
  7. TEGRETOL [Concomitant]
  8. LASIX [Concomitant]
  9. EXJADE [Suspect]
     Indication: IRON OVERLOAD
  10. POTASSIUM [Concomitant]
  11. GLUCERNA [Concomitant]
  12. METOLAZONE [Concomitant]
  13. ALLOPURINOL [Concomitant]

REACTIONS (3)
  - FALL [None]
  - CARDIAC FAILURE CONGESTIVE [None]
  - DEATH [None]
